FAERS Safety Report 8502862-5 (Version None)
Quarter: 2012Q3

REPORT INFORMATION
  Report Type: 
  Country: None (occurrence: None)
  Receive Date: 20120711
  Receipt Date: 20120703
  Transmission Date: 20120928
  Serious: Yes (Hospitalization, Other)
  Sender: FDA-Public Use
  Company Number: FR-SANOFI-AVENTIS-2012SA047910

PATIENT
  Age: 32 Year
  Sex: Female

DRUGS (9)
  1. RIFAMPICIN [Interacting]
     Indication: SARCOIDOSIS
     Route: 065
  2. ISONIAZID [Suspect]
     Indication: SARCOIDOSIS
     Route: 065
  3. MOXIFLOXACIN [Concomitant]
     Indication: SARCOIDOSIS
  4. IMMUNOSUPPRESSIVE AGENTS [Interacting]
     Indication: IMMUNOSUPPRESSION
     Route: 065
  5. ETHAMBUTOL HYDROCHLORIDE [Concomitant]
     Indication: SARCOIDOSIS
  6. RIFAMPICIN [Interacting]
     Route: 065
  7. PREDNISOLONE [Interacting]
     Indication: IMMUNOSUPPRESSION
     Route: 065
  8. PYRAZINAMIDE [Concomitant]
     Indication: SARCOIDOSIS
  9. ETHAMBUTOL HYDROCHLORIDE [Concomitant]

REACTIONS (5)
  - JAUNDICE [None]
  - DRUG INTERACTION [None]
  - ACUTE HEPATIC FAILURE [None]
  - KIDNEY TRANSPLANT REJECTION [None]
  - ALANINE AMINOTRANSFERASE INCREASED [None]
